FAERS Safety Report 16241077 (Version 2)
Quarter: 2019Q2

REPORT INFORMATION
  Report Type: Spontaneous
  Country: US (occurrence: US)
  Receive Date: 20190425
  Receipt Date: 20190603
  Transmission Date: 20190711
  Serious: No
  Sender: FDA-Public Use
  Company Number: US-ASTRAZENECA-2019SE50552

PATIENT
  Age: 944 Month
  Sex: Female

DRUGS (1)
  1. SYMBICORT [Suspect]
     Active Substance: BUDESONIDE\FORMOTEROL FUMARATE DIHYDRATE
     Dosage: 160/4.5 MCG UNKNOWN UNKNOWN
     Route: 055

REACTIONS (6)
  - Device failure [Unknown]
  - Intentional device misuse [Unknown]
  - Device malfunction [Unknown]
  - Fatigue [Unknown]
  - Drug dose omission by device [Unknown]
  - Dyspnoea [Unknown]

NARRATIVE: CASE EVENT DATE: 201902
